FAERS Safety Report 12122053 (Version 1)
Quarter: 2016Q1

REPORT INFORMATION
  Report Type: Spontaneous
  Country: US (occurrence: US)
  Receive Date: 20160226
  Receipt Date: 20160226
  Transmission Date: 20160526
  Serious: No
  Sender: FDA-Public Use
  Company Number: US-ALLERGAN-1425770US

PATIENT
  Sex: Female
  Weight: 60.77 kg

DRUGS (9)
  1. REFRESH OPTIVE ADVANCED [Suspect]
     Active Substance: CARBOXYMETHYLCELLULOSE SODIUM\GLYCERIN\POLYSORBATE 80
     Indication: DRY EYE
     Dosage: UNK
     Dates: start: 20140820, end: 20140827
  2. REFRESH OPTIVE [Suspect]
     Active Substance: CARBOXYMETHYLCELLULOSE SODIUM\GLYCERIN
     Indication: DRY EYE
     Dosage: 2 GTT, TID
     Route: 047
     Dates: start: 20140816, end: 20140820
  3. POTASSIUM [Concomitant]
     Active Substance: POTASSIUM
  4. LORAZEPAM. [Concomitant]
     Active Substance: LORAZEPAM
  5. FENOFIBRATE. [Concomitant]
     Active Substance: FENOFIBRATE
  6. LOSARTAN. [Concomitant]
     Active Substance: LOSARTAN
  7. VITAMIN D3 [Concomitant]
     Active Substance: CHOLECALCIFEROL
  8. OMEGA 3 FISH OIL [Concomitant]
     Active Substance: FISH OIL\OMEGA-3 FATTY ACIDS
  9. LEVOTHYROXINE. [Concomitant]
     Active Substance: LEVOTHYROXINE

REACTIONS (3)
  - Product expiration date issue [Unknown]
  - Drug hypersensitivity [Recovered/Resolved]
  - Eye irritation [Recovered/Resolved]
